FAERS Safety Report 18182507 (Version 2)
Quarter: 2020Q3

REPORT INFORMATION
  Report Type: Spontaneous
  Country: US (occurrence: US)
  Receive Date: 20200821
  Receipt Date: 20200903
  Transmission Date: 20201103
  Serious: Yes (Other)
  Sender: FDA-Public Use
  Company Number: US-SIMILASAN CORPORATION-US-2020SIM000025

PATIENT
  Sex: Female

DRUGS (1)
  1. ALLERGY EYE RELIEF (HOMEOPATHIC) [Suspect]
     Active Substance: HOMEOPATHICS
     Indication: PRODUCT USED FOR UNKNOWN INDICATION
     Dosage: NI/6 OR MORE TIMES PER DAY/
     Route: 047
     Dates: start: 20200726, end: 20200801

REACTIONS (4)
  - Anaphylactic shock [Unknown]
  - Meningitis [Unknown]
  - Cerebrovascular accident [Unknown]
  - Autoimmune disorder [Unknown]

NARRATIVE: CASE EVENT DATE: 202007
